FAERS Safety Report 17098826 (Version 3)
Quarter: 2020Q3

REPORT INFORMATION
  Report Type: Spontaneous
  Country: US (occurrence: US)
  Receive Date: 20191202
  Receipt Date: 20200910
  Transmission Date: 20201102
  Serious: Yes (Other)
  Sender: FDA-Public Use
  Company Number: US-PFIZER INC-2018283729

PATIENT
  Age: 63 Year
  Sex: Male
  Weight: 91 kg

DRUGS (12)
  1. PRISTIQ EXTENDED?RELEASE [Suspect]
     Active Substance: DESVENLAFAXINE SUCCINATE
     Indication: ATTENTION DEFICIT HYPERACTIVITY DISORDER
     Dosage: 150 MG, UNK
  2. PRISTIQ EXTENDED?RELEASE [Suspect]
     Active Substance: DESVENLAFAXINE SUCCINATE
     Indication: STRESS
     Dosage: 150 MG, DAILY
     Route: 048
  3. NORVASC [Concomitant]
     Active Substance: AMLODIPINE BESYLATE
     Indication: BLOOD PRESSURE ABNORMAL
     Dosage: 5 MG, DAILY
     Route: 048
  4. PRISTIQ EXTENDED?RELEASE [Suspect]
     Active Substance: DESVENLAFAXINE SUCCINATE
     Dosage: 250 MG, DAILY (5 TAB PO (ORAL) Q (EVERY) DAY)
     Route: 048
     Dates: start: 20190708
  5. IBUPROFEN. [Concomitant]
     Active Substance: IBUPROFEN
     Indication: PAIN
     Dosage: 80 MG, 3X/DAY
  6. ELMIRON [Concomitant]
     Active Substance: PENTOSAN POLYSULFATE SODIUM
     Indication: BLADDER DISORDER
     Dosage: UNK
  7. PRISTIQ EXTENDED?RELEASE [Suspect]
     Active Substance: DESVENLAFAXINE SUCCINATE
     Indication: ANXIETY
     Dosage: 200 MG, DAILY (2 TABLETS DAILY)
     Route: 048
  8. ASPIRIN. [Concomitant]
     Active Substance: ASPIRIN
     Indication: HYPERTENSIVE HEART DISEASE
     Dosage: 81 MG, DAILY
     Route: 048
  9. DETROL LA [Suspect]
     Active Substance: TOLTERODINE TARTRATE
     Indication: BLADDER DISORDER
     Dosage: 8 MG, DAILY (4MG CAPSULES, 2 A DAY IN MORNING)
  10. DETROL LA [Suspect]
     Active Substance: TOLTERODINE TARTRATE
     Indication: MICTURITION DISORDER
     Dosage: 8 MG, DAILY (TWO 4MG)
     Route: 048
  11. PRISTIQ EXTENDED?RELEASE [Suspect]
     Active Substance: DESVENLAFAXINE SUCCINATE
     Indication: DEPRESSION
     Dosage: 50 MG, 3X/DAY
     Route: 048
  12. PRISTIQ EXTENDED?RELEASE [Suspect]
     Active Substance: DESVENLAFAXINE SUCCINATE
     Dosage: 250 MG, 1X/DAY (50MG FIVE TABLETS AT ONE TIME ONCE A DAY; SOMETIMES TAKE AN EXTRA ONE)

REACTIONS (4)
  - Neoplasm malignant [Unknown]
  - Weight increased [Unknown]
  - Prescribed overdose [Unknown]
  - Single functional kidney [Unknown]
